FAERS Safety Report 5590080-2 (Version None)
Quarter: 2008Q1

REPORT INFORMATION
  Report Type: 
  Country: None (occurrence: None)
  Receive Date: 20080114
  Receipt Date: 20070507
  Transmission Date: 20080703
  Serious: Yes (Hospitalization)
  Sender: FDA-Public Use
  Company Number: US-ABBOTT-07P-163-0360216-00

PATIENT
  Sex: Male
  Weight: 15.89 kg

DRUGS (2)
  1. OMNICEF [Suspect]
     Indication: BRONCHITIS
     Route: 048
     Dates: start: 20070205, end: 20070221
  2. LEVOSALBUTAMOL [Concomitant]
     Indication: BRONCHITIS
     Dates: start: 20070205, end: 20070221

REACTIONS (2)
  - PURPURA [None]
  - URTICARIA [None]
